FAERS Safety Report 4731657-3 (Version None)
Quarter: 2005Q3

REPORT INFORMATION
  Report Type: 
  Country: None (occurrence: None)
  Receive Date: 20050725
  Receipt Date: 20041215
  Transmission Date: 20060218
  Serious: Yes (Other)
  Sender: FDA-Public Use
  Company Number: WAES 0412USA01979

PATIENT
  Age: 71 Year
  Sex: Female
  Weight: 65.318 kg

DRUGS (3)
  1. VIOXX [Suspect]
     Indication: ARTHRITIS
     Dosage: 25 MG/DAILY/PO
     Route: 048
     Dates: start: 20010901, end: 20040930
  2. METHOTREXATE [Concomitant]
  3. PREDNISONE [Concomitant]

REACTIONS (2)
  - KIDNEY INFECTION [None]
  - URINARY TRACT INFECTION [None]
